FAERS Safety Report 4657450-8 (Version None)
Quarter: 2005Q2

REPORT INFORMATION
  Report Type: 
  Country: None (occurrence: None)
  Receive Date: 20050509
  Receipt Date: 20050509
  Transmission Date: 20051028
  Serious: No
  Sender: FDA-Public Use
  Company Number: None

PATIENT
  Sex: Male
  Weight: 33.2 kg

DRUGS (2)
  1. PREDNISONE [Suspect]
     Indication: ACUTE LYMPHOCYTIC LEUKAEMIA
     Dates: start: 20040925
  2. METHOTREXATE [Suspect]

REACTIONS (4)
  - CARDIOVASCULAR DISORDER [None]
  - CEREBRAL INFARCTION [None]
  - DYSARTHRIA [None]
  - FACIAL PARESIS [None]
